FAERS Safety Report 22032390 (Version 1)
Quarter: 2023Q1

REPORT INFORMATION
  Report Type: Spontaneous
  Country: CN (occurrence: CN)
  Receive Date: 20230224
  Receipt Date: 20230224
  Transmission Date: 20230418
  Serious: Yes (Hospitalization)
  Sender: FDA-Public Use
  Company Number: CN-STRIDES ARCOLAB LIMITED-2023SP002596

PATIENT
  Age: 59 Year
  Sex: Female
  Weight: 57 kg

DRUGS (1)
  1. LETROZOLE [Suspect]
     Active Substance: LETROZOLE
     Indication: Antioestrogen therapy
     Dosage: UNK
     Route: 048

REACTIONS (5)
  - Vaginal cuff dehiscence [Recovered/Resolved]
  - Vaginal prolapse [Recovered/Resolved]
  - Wound evisceration [Recovered/Resolved]
  - Impaired healing [Unknown]
  - Blood oestrogen decreased [Unknown]
